FAERS Safety Report 6485567-4 (Version None)
Quarter: 2009Q4

REPORT INFORMATION
  Report Type: 
  Country: None (occurrence: None)
  Receive Date: 20091209
  Receipt Date: 20090630
  Transmission Date: 20100525
  Serious: No
  Sender: FDA-Public Use
  Company Number: US-AMGEN-KDL353829

PATIENT
  Sex: Female

DRUGS (3)
  1. ENBREL [Suspect]
     Indication: RHEUMATOID ARTHRITIS
     Route: 058
     Dates: start: 20090605
  2. IBUPROFEN [Concomitant]
  3. VICODIN [Concomitant]

REACTIONS (5)
  - ARTHRALGIA [None]
  - COUGH [None]
  - DIZZINESS [None]
  - JOINT LOCK [None]
  - VIRAL INFECTION [None]
